FAERS Safety Report 9785870 (Version 1)
Quarter: 2013Q4

REPORT INFORMATION
  Report Type: Spontaneous
  Country: DE (occurrence: None)
  Receive Date: 20131223
  Receipt Date: 20131223
  Transmission Date: 20140711
  Serious: Yes (Death)
  Sender: FDA-Public Use
  Company Number: 2013P1021948

PATIENT
  Age: 61 Year
  Sex: Male

DRUGS (2)
  1. DIPHENHYDRAMINE [Suspect]
  2. DOXYLAMINE [Concomitant]

REACTIONS (6)
  - Completed suicide [None]
  - Pulmonary oedema [None]
  - Brain oedema [None]
  - Oedematous kidney [None]
  - Drug interaction [None]
  - Toxicity to various agents [None]
